FAERS Safety Report 7555295-2 (Version None)
Quarter: 2011Q2

REPORT INFORMATION
  Report Type: 
  Country: None (occurrence: None)
  Receive Date: 20110617
  Receipt Date: 20110614
  Transmission Date: 20111010
  Serious: Yes (Death)
  Sender: FDA-Public Use
  Company Number: PHHY2011US52974

PATIENT
  Sex: Female

DRUGS (2)
  1. RECLAST [Suspect]
     Route: 042
     Dates: start: 20080101
  2. RECLAST [Suspect]
     Route: 042
     Dates: start: 20100601

REACTIONS (1)
  - DEATH [None]
